FAERS Safety Report 8028018-0 (Version None)
Quarter: 2012Q1

REPORT INFORMATION
  Report Type: 
  Country: None (occurrence: None)
  Receive Date: 20120104
  Receipt Date: 20111222
  Transmission Date: 20120608
  Serious: Yes (Death, Life-Threatening, Hospitalization)
  Sender: FDA-Public Use
  Company Number: US-CYPR-2011-000035

PATIENT
  Sex: Female
  Weight: 99.3377 kg

DRUGS (14)
  1. LITHIUM CARBONATE [Concomitant]
  2. PREVACID [Concomitant]
  3. PLAQUENIL [Concomitant]
  4. LIPITOR [Concomitant]
  5. CYPHER STENT [Concomitant]
  6. DIOVAN [Concomitant]
  7. CLOPIDOGREL [Suspect]
     Indication: ANTIPLATELET THERAPY
     Dosage: (75 MG QD ORAL)
     Route: 048
     Dates: start: 20110309, end: 20110803
  8. ESCITALOPRAM [Concomitant]
  9. ATENOLOL [Concomitant]
  10. EZETIMIBE [Concomitant]
  11. NITROGLYCERIN [Concomitant]
  12. ASPIRIN [Suspect]
     Indication: CORONARY ARTERY DISEASE
     Dosage: (81 MG QD ORAL) ; (325 MG QD ORAL)
     Route: 048
     Dates: start: 20091209, end: 20110803
  13. ASPIRIN [Suspect]
     Indication: CORONARY ARTERY DISEASE
     Dosage: (81 MG QD ORAL) ; (325 MG QD ORAL)
     Route: 048
     Dates: start: 20110803, end: 20110810
  14. METFORMIN HCL [Concomitant]

REACTIONS (11)
  - RESPIRATORY FAILURE [None]
  - HYPOTENSION [None]
  - SUDDEN DEATH [None]
  - CORONARY ARTERY DISEASE [None]
  - MYOCARDIAL INFARCTION [None]
  - BUNDLE BRANCH BLOCK [None]
  - LEFT VENTRICULAR DYSFUNCTION [None]
  - CARDIAC DEATH [None]
  - CORONARY ARTERY OCCLUSION [None]
  - GENERAL PHYSICAL HEALTH DETERIORATION [None]
  - IN-STENT CORONARY ARTERY RESTENOSIS [None]
